FAERS Safety Report 15865172 (Version 3)
Quarter: 2019Q1

REPORT INFORMATION
  Report Type: Spontaneous
  Country: US (occurrence: US)
  Receive Date: 20190124
  Receipt Date: 20190205
  Transmission Date: 20190417
  Serious: Yes (Death, Hospitalization, Other)
  Sender: FDA-Public Use
  Company Number: US-VIFOR (INTERNATIONAL) INC.-VIT-2019-00323

PATIENT
  Sex: Female
  Weight: 48.08 kg

DRUGS (17)
  1. OXYBUTYNIN CHLORIDE. [Concomitant]
     Active Substance: OXYBUTYNIN CHLORIDE
     Route: 048
  2. ALPRAZOLAM. [Concomitant]
     Active Substance: ALPRAZOLAM
     Route: 048
  3. TRAZODONE [Concomitant]
     Active Substance: TRAZODONE HYDROCHLORIDE
     Route: 048
  4. ATORVASTATIN [Concomitant]
     Active Substance: ATORVASTATIN
     Route: 048
  5. NICOTINE. [Concomitant]
     Active Substance: NICOTINE
     Dosage: 21 MG/24 HOUR
     Route: 062
  6. IPRATROPIUM ALBUTEROL [Concomitant]
     Active Substance: ALBUTEROL\IPRATROPIUM
     Dosage: 2 TABLETS ORALLY EVERY BED TIME AS NEEDED
  7. FOLIC ACID. [Concomitant]
     Active Substance: FOLIC ACID
     Route: 048
  8. GABAPENTIN. [Concomitant]
     Active Substance: GABAPENTIN
     Indication: PAIN
  9. PROCRIT [Concomitant]
     Active Substance: ERYTHROPOIETIN
     Dosage: 10000 UNITS/ML
  10. LEVOFLOXACIN. [Concomitant]
     Active Substance: LEVOFLOXACIN
     Indication: URINARY TRACT INFECTION
     Dosage: 2TABLETS ONE DAY AND THEN 1 TABLET EVERY OTHER DAY
     Route: 048
  11. KIONEX [Concomitant]
     Active Substance: SODIUM POLYSTYRENE SULFONATE
  12. SODIUM BICARBONATE. [Concomitant]
     Active Substance: SODIUM BICARBONATE
     Route: 048
  13. VITAMIN D2 [Concomitant]
     Active Substance: ERGOCALCIFEROL
     Route: 048
  14. ASPIRIN. [Concomitant]
     Active Substance: ASPIRIN
     Route: 048
  15. ROPINIROLE. [Concomitant]
     Active Substance: ROPINIROLE
     Route: 048
  16. VELTASSA [Suspect]
     Active Substance: PATIROMER
     Indication: BLOOD POTASSIUM INCREASED
     Route: 048
     Dates: start: 2017
  17. DULOXETINE. [Concomitant]
     Active Substance: DULOXETINE
     Route: 048

REACTIONS (20)
  - Constipation [Unknown]
  - Obesity [Unknown]
  - Death [Fatal]
  - Asthenia [Unknown]
  - Influenza like illness [Unknown]
  - Urinary tract infection [Recovering/Resolving]
  - Palpitations [Unknown]
  - Product dose omission [Unknown]
  - Dyspnoea [Unknown]
  - Malaise [Unknown]
  - Pain [Unknown]
  - Fatigue [Unknown]
  - Product preparation error [Unknown]
  - Mass [Unknown]
  - Metabolic acidosis [Recovered/Resolved]
  - Fall [Unknown]
  - Insomnia [Unknown]
  - Oedema peripheral [Unknown]
  - Urinary retention [Unknown]
  - Urinary incontinence [Not Recovered/Not Resolved]

NARRATIVE: CASE EVENT DATE: 2017
